FAERS Safety Report 6440950-8 (Version None)
Quarter: 2009Q4

REPORT INFORMATION
  Report Type: 
  Country: None (occurrence: None)
  Receive Date: 20091116
  Receipt Date: 20091103
  Transmission Date: 20100525
  Serious: Yes (Hospitalization)
  Sender: FDA-Public Use
  Company Number: GB-ROCHE-624727

PATIENT
  Sex: Female
  Weight: 51.6 kg

DRUGS (3)
  1. MYCOPHENOLATE MOFETIL [Suspect]
     Indication: VASCULITIS
     Route: 065
  2. CYCLOPHOSPHAMIDE [Suspect]
     Indication: VASCULITIS
     Dosage: DOSAGE FORM :INFUSION
     Route: 042
     Dates: start: 20090302
  3. CYCLOPHOSPHAMIDE [Suspect]
     Route: 042
     Dates: start: 20090316

REACTIONS (1)
  - SICKLE CELL ANAEMIA WITH CRISIS [None]
